FAERS Safety Report 8262435-9 (Version None)
Quarter: 2012Q2

REPORT INFORMATION
  Report Type: 
  Country: None (occurrence: None)
  Receive Date: 20120405
  Receipt Date: 20120327
  Transmission Date: 20120825
  Serious: Yes (Hospitalization, Other)
  Sender: FDA-Public Use
  Company Number: CA-JNJFOC-20120313481

PATIENT
  Sex: Male
  Weight: 72.7 kg

DRUGS (4)
  1. METFORMIN HCL [Concomitant]
     Route: 065
  2. REMICADE [Suspect]
     Route: 042
     Dates: start: 20081021
  3. EFFEXOR [Concomitant]
     Route: 065
  4. REMICADE [Suspect]
     Indication: CROHN'S DISEASE
     Dosage: 27TH INFUSION
     Route: 042
     Dates: start: 20111219

REACTIONS (2)
  - ABDOMINAL PAIN [None]
  - PROCEDURAL HAEMORRHAGE [None]
